FAERS Safety Report 10250258 (Version 1)
Quarter: 2014Q2

REPORT INFORMATION
  Report Type: Spontaneous
  Country: US (occurrence: US)
  Receive Date: 20140620
  Receipt Date: 20140620
  Transmission Date: 20141212
  Serious: No
  Sender: FDA-Public Use
  Company Number: DE-ASTRAZENECA-2014SE45103

PATIENT
  Age: 81 Year
  Sex: Female

DRUGS (4)
  1. VIMOVO [Suspect]
     Indication: PRODUCT USED FOR UNKNOWN INDICATION
     Dosage: 500 MG/20 MG
     Route: 048
     Dates: start: 201405
  2. VIMOVO [Suspect]
     Indication: PRODUCT USED FOR UNKNOWN INDICATION
     Dosage: 500 MG/20 MG, 2 TABLETS OF VIMOVO, 1 DF TWO TIMES A DAY, IN MORNING AND AT NIGHT
     Route: 048
     Dates: start: 20140601
  3. MYLANTA [Concomitant]
  4. SINUS THING/SPRAY SQUIRT THING FOR THE NOSE/OTHER MEDICATION [Concomitant]

REACTIONS (2)
  - Accidental overdose [Unknown]
  - Abdominal discomfort [Unknown]
